FAERS Safety Report 7167591-1 (Version None)
Quarter: 2010Q4

REPORT INFORMATION
  Report Type: 
  Country: None (occurrence: None)
  Receive Date: 20101216
  Receipt Date: 20100421
  Transmission Date: 20110411
  Serious: No
  Sender: FDA-Public Use
  Company Number: A0856052A

PATIENT
  Age: 42 Year
  Sex: Female

DRUGS (1)
  1. NICOTINE POLACRILEX [Suspect]
     Dates: start: 20100420, end: 20100420

REACTIONS (3)
  - MALAISE [None]
  - ORAL DISCOMFORT [None]
  - VOMITING [None]
